FAERS Safety Report 21672995 (Version 1)
Quarter: 2022Q4

REPORT INFORMATION
  Report Type: Spontaneous
  Country: PT (occurrence: PT)
  Receive Date: 20221202
  Receipt Date: 20221202
  Transmission Date: 20230112
  Serious: Yes (Other)
  Sender: FDA-Public Use
  Company Number: None

PATIENT
  Age: 83 Year
  Sex: Male

DRUGS (12)
  1. FINASTERIDE [Interacting]
     Active Substance: FINASTERIDE
     Indication: Hypertension
     Dosage: 5 MILLIGRAM
  2. AMIODARONE [Interacting]
     Active Substance: AMIODARONE
     Indication: Hypertension
     Dosage: 100 MILLIGRAM
  3. GABAPENTIN [Interacting]
     Active Substance: GABAPENTIN
     Indication: Myoclonus
     Dosage: 100 MILLIGRAM
  4. ROPINIROLE [Interacting]
     Active Substance: ROPINIROLE
     Indication: Hypertension
     Dosage: 0.5 MILLIGRAM, 3 TIMES A DAY
  5. SIMVASTATIN [Interacting]
     Active Substance: SIMVASTATIN
     Indication: Hypertension
     Dosage: 10 MILLIGRAM
  6. LERCANIDIPINE [Interacting]
     Active Substance: LERCANIDIPINE
     Indication: Hypertension
     Dosage: 10 MILLIGRAM
  7. CLEBOPRIDE [Interacting]
     Active Substance: CLEBOPRIDE
     Indication: Dyspepsia
     Dosage: 0.5 MILLIGRAM, TWO TIMES A DAY
     Dates: start: 201911, end: 202007
  8. RIVAROXABAN [Interacting]
     Active Substance: RIVAROXABAN
     Indication: Hypertension
     Dosage: 20 MILLIGRAM
  9. VALERIAN [Interacting]
     Active Substance: VALERIAN
     Indication: Product used for unknown indication
     Dosage: 125 MILLIGRAM
  10. ESOMEPRAZOLE [Concomitant]
     Active Substance: ESOMEPRAZOLE
     Dosage: STRENGTH: 20 MG
  11. VALSARTAN AND HYDROCHLOROTHIAZIDE [Concomitant]
     Active Substance: HYDROCHLOROTHIAZIDE\VALSARTAN
     Indication: Hypertension
     Dosage: 2.5/160 MILLIGRAM
  12. ROPINIROLE [Interacting]
     Active Substance: ROPINIROLE
     Indication: Hypertension
     Dosage: 0.5 MILLIGRAM, TWO TIMES A DAY

REACTIONS (4)
  - Nausea [Unknown]
  - Tremor [Recovered/Resolved]
  - Tardive dyskinesia [Recovered/Resolved]
  - Drug interaction [Unknown]

NARRATIVE: CASE EVENT DATE: 20200701
